FAERS Safety Report 5598777-5 (Version None)
Quarter: 2008Q1

REPORT INFORMATION
  Report Type: 
  Country: None (occurrence: None)
  Receive Date: 20080122
  Receipt Date: 20080115
  Transmission Date: 20080703
  Serious: Yes (Other)
  Sender: FDA-Public Use
  Company Number: GB-RANBAXY-2008RR-12628

PATIENT

DRUGS (6)
  1. IBUPROFEN TABLETS BP 200MG [Suspect]
     Route: 065
  2. ALCOHOL [Suspect]
     Route: 065
  3. PARACETAMOL TABLETS BP 500MG [Suspect]
     Route: 065
  4. SEROXAT [Suspect]
     Dosage: UNK
     Route: 065
     Dates: start: 20001010
  5. CHLORDIAZEPOXIDE CAPSULES BP 5MG [Concomitant]
     Dosage: UNK
     Dates: start: 20001108
  6. FLUOXETINE 20MG CAPSULES [Concomitant]

REACTIONS (21)
  - ABASIA [None]
  - ABNORMAL BEHAVIOUR [None]
  - ADVERSE DRUG REACTION [None]
  - AGGRESSION [None]
  - AGITATION [None]
  - ANXIETY [None]
  - ASTHENIA [None]
  - CONFUSIONAL STATE [None]
  - DISINHIBITION [None]
  - DISTURBANCE IN ATTENTION [None]
  - FEAR [None]
  - MUSCULAR WEAKNESS [None]
  - OVERDOSE [None]
  - PANIC ATTACK [None]
  - PARAESTHESIA [None]
  - PARANOIA [None]
  - RESTLESSNESS [None]
  - SUICIDAL BEHAVIOUR [None]
  - SYNCOPE [None]
  - TEARFULNESS [None]
  - WITHDRAWAL SYNDROME [None]
